FAERS Safety Report 15077457 (Version 1)
Quarter: 2018Q2

REPORT INFORMATION
  Report Type: Spontaneous
  Country: PT (occurrence: PT)
  Receive Date: 20180627
  Receipt Date: 20180627
  Transmission Date: 20180711
  Serious: Yes (Other)
  Sender: FDA-Public Use
  Company Number: PT-MYLANLABS-2018M1045411

PATIENT
  Age: 23 Year
  Sex: Female

DRUGS (1)
  1. MONTELUKAST [Suspect]
     Active Substance: MONTELUKAST SODIUM
     Indication: DRUG PROVOCATION TEST
     Dosage: UNK
     Route: 048

REACTIONS (4)
  - Drug reaction with eosinophilia and systemic symptoms [Unknown]
  - Angioedema [Unknown]
  - Maternal exposure during pregnancy [Unknown]
  - Urticaria [Unknown]
